FAERS Safety Report 7227056-5 (Version None)
Quarter: 2011Q1

REPORT INFORMATION
  Report Type: 
  Country: None (occurrence: None)
  Receive Date: 20110114
  Receipt Date: 20101210
  Transmission Date: 20110831
  Serious: Yes (Death, Other)
  Sender: FDA-Public Use
  Company Number: PHHY2010NL89289

PATIENT
  Sex: Male

DRUGS (3)
  1. ZOMETA [Suspect]
     Indication: PROSTATE CANCER METASTATIC
     Dosage: 4 MG/5 ML CONCENTRATE FOR SOLUTION FOR INFUSION
     Route: 042
     Dates: start: 20081203
  2. ELIGARD [Concomitant]
     Dosage: UNK
  3. SODIUM CHLORIDE [Concomitant]
     Dosage: 0.9 % 100 ML

REACTIONS (3)
  - TERMINAL STATE [None]
  - GENERAL PHYSICAL HEALTH DETERIORATION [None]
  - DEATH [None]
